FAERS Safety Report 5635478-9 (Version None)
Quarter: 2008Q1

REPORT INFORMATION
  Report Type: 
  Country: None (occurrence: None)
  Receive Date: 20080222
  Receipt Date: 20080215
  Transmission Date: 20080703
  Serious: Yes (Hospitalization)
  Sender: FDA-Public Use
  Company Number: FR-BAYER-200710322BFR

PATIENT
  Age: 70 Year
  Sex: Male
  Weight: 65 kg

DRUGS (42)
  1. SORAFENIB OR PLACEBO [Suspect]
     Indication: NON-SMALL CELL LUNG CANCER
     Dosage: TOTAL DAILY DOSE: 800 MG  UNIT DOSE: 200 MG
     Route: 048
     Dates: start: 20070511, end: 20070515
  2. SORAFENIB OR PLACEBO [Suspect]
     Dosage: TOTAL DAILY DOSE: 800 MG  UNIT DOSE: 200 MG
     Route: 048
     Dates: start: 20070520, end: 20070615
  3. GEMCITABINE [Suspect]
     Indication: NON-SMALL CELL LUNG CANCER
     Dosage: TOTAL DAILY DOSE: 2200 MG
     Route: 042
     Dates: start: 20070511, end: 20070511
  4. GEMCITABINE [Suspect]
     Dosage: TOTAL DAILY DOSE: 2200 MG
     Route: 042
     Dates: start: 20070518, end: 20070518
  5. GEMCITABINE [Suspect]
     Dosage: TOTAL DAILY DOSE: 2100 MG
     Route: 042
     Dates: start: 20070601, end: 20070601
  6. GEMCITABINE [Suspect]
     Dosage: TOTAL DAILY DOSE: 2100 MG
     Route: 042
     Dates: start: 20070608, end: 20070608
  7. CISPLATIN [Suspect]
     Indication: NON-SMALL CELL LUNG CANCER
     Dosage: TOTAL DAILY DOSE: 130 MG
     Route: 042
     Dates: start: 20070601, end: 20070601
  8. CISPLATIN [Suspect]
     Route: 042
     Dates: start: 20070710
  9. CISPLATIN [Suspect]
     Dosage: TOTAL DAILY DOSE: 130 MG
     Route: 042
     Dates: start: 20070511, end: 20070511
  10. KARDEGIC [Concomitant]
     Indication: UNEVALUABLE EVENT
     Route: 048
     Dates: end: 20070606
  11. ISOPTIN [Concomitant]
     Indication: HYPERTENSION
     Route: 048
     Dates: start: 20070511
  12. CRESTOR [Concomitant]
     Indication: HYPERLIPIDAEMIA
     Route: 048
     Dates: start: 20070419
  13. STILNOX [Concomitant]
     Indication: ANXIETY
     Route: 048
     Dates: start: 20070419, end: 20070510
  14. STILNOX [Concomitant]
     Route: 048
     Dates: start: 20070511
  15. PARIET [Concomitant]
     Indication: DYSPHAGIA
     Route: 048
     Dates: start: 20070419
  16. PRIMPERAN INJ [Concomitant]
     Indication: PROPHYLAXIS OF NAUSEA AND VOMITING
     Route: 048
     Dates: start: 20070607, end: 20070608
  17. FORLAX [Concomitant]
     Indication: CONSTIPATION
     Route: 048
     Dates: start: 20070606, end: 20070611
  18. FORLAX [Concomitant]
     Route: 048
     Dates: start: 20070520, end: 20070524
  19. OXYNORM [Concomitant]
     Indication: BACK PAIN
     Dosage: TOTAL DAILY DOSE: 30 MG
     Route: 048
     Dates: start: 20070419
  20. LYRICA [Concomitant]
     Indication: ANXIETY
     Route: 048
     Dates: start: 20070607
  21. LYRICA [Concomitant]
     Route: 048
     Dates: start: 20070522, end: 20070606
  22. ALUMINUM HYDROXIDE AND MAGNESIUM TRISILICATE [Concomitant]
     Indication: DIARRHOEA
     Route: 048
     Dates: start: 20070607
  23. ALUMINUM HYDROXIDE AND MAGNESIUM TRISILICATE [Concomitant]
     Route: 065
     Dates: start: 20070517
  24. RIVOTRIL [Concomitant]
     Indication: BACK PAIN
     Route: 042
     Dates: start: 20070510, end: 20070511
  25. RIVOTRIL [Concomitant]
     Route: 048
     Dates: start: 20070512, end: 20070601
  26. RIVOTRIL [Concomitant]
     Route: 048
     Dates: start: 20070419, end: 20070419
  27. TAXOTERE [Concomitant]
     Indication: CHEMOTHERAPY
     Route: 042
     Dates: start: 20070710
  28. CORTANCYL [Concomitant]
     Indication: BACK PAIN
     Route: 065
     Dates: start: 20070419, end: 20070419
  29. CORTANCYL [Concomitant]
     Route: 065
     Dates: start: 20070511, end: 20070513
  30. LAROXYL [Concomitant]
     Indication: ANXIETY
     Route: 065
     Dates: start: 20070510, end: 20070515
  31. LAROXYL [Concomitant]
     Route: 065
     Dates: start: 20070516, end: 20070606
  32. SPASFON LYOC [Concomitant]
     Indication: ABDOMINAL PAIN
     Route: 065
     Dates: start: 20070517
  33. OXYCONTIN [Concomitant]
     Indication: BACK PAIN
     Route: 065
     Dates: start: 20070419
  34. VERAPAMIL [Concomitant]
     Indication: HYPERTENSION
     Route: 065
     Dates: start: 20070419
  35. DEROXAT [Concomitant]
     Indication: ANXIETY
     Route: 065
     Dates: start: 20070522
  36. DAFALGAN [Concomitant]
     Indication: BACK PAIN
     Route: 065
     Dates: start: 20070511
  37. LARGACTIL [Concomitant]
     Indication: NEURALGIA
     Route: 065
     Dates: start: 20070607
  38. SOLU-MEDROL [Concomitant]
     Indication: PROPHYLAXIS OF NAUSEA AND VOMITING
     Route: 065
     Dates: start: 20070511, end: 20070511
  39. SOLU-MEDROL [Concomitant]
     Route: 065
     Dates: start: 20070601, end: 20070601
  40. ZOPHREN [Concomitant]
     Indication: PROPHYLAXIS OF NAUSEA AND VOMITING
     Route: 065
     Dates: start: 20070608, end: 20070608
  41. ZOPHREN [Concomitant]
     Route: 065
     Dates: start: 20070511, end: 20070511
  42. ZOPHREN [Concomitant]
     Route: 065
     Dates: start: 20070601, end: 20070601

REACTIONS (3)
  - DIARRHOEA [None]
  - GENERAL PHYSICAL HEALTH DETERIORATION [None]
  - WEIGHT DECREASED [None]
